FAERS Safety Report 24364991 (Version 2)
Quarter: 2024Q4

REPORT INFORMATION
  Report Type: Report from Study
  Country: CO (occurrence: CO)
  Receive Date: 20240926
  Receipt Date: 20241025
  Transmission Date: 20250115
  Serious: Yes (Hospitalization, Other)
  Sender: UCB
  Company Number: CO-UCBSA-2024047464

PATIENT
  Age: 46 Year
  Sex: Female

DRUGS (2)
  1. CERTOLIZUMAB PEGOL [Suspect]
     Active Substance: CERTOLIZUMAB PEGOL
     Indication: Psoriasis
     Dosage: 400 MILLIGRAM, EV 15 DAYS
     Route: 058
     Dates: start: 20240903
  2. MONTELUKAST [Concomitant]
     Active Substance: MONTELUKAST
     Indication: Product used for unknown indication
     Dosage: UNK

REACTIONS (9)
  - Skin burning sensation [Recovered/Resolved]
  - Erythema [Recovering/Resolving]
  - Rash pustular [Recovering/Resolving]
  - Erysipelas [Not Recovered/Not Resolved]
  - Psoriasis [Not Recovered/Not Resolved]
  - Ultrasound Doppler [Not Recovered/Not Resolved]
  - Bronchitis [Recovered/Resolved]
  - Cough [Not Recovered/Not Resolved]
  - Off label use [Unknown]

NARRATIVE: CASE EVENT DATE: 20240903
